FAERS Safety Report 6529290-6 (Version None)
Quarter: 2010Q1

REPORT INFORMATION
  Report Type: 
  Country: None (occurrence: None)
  Receive Date: 20100107
  Receipt Date: 20091225
  Transmission Date: 20100710
  Serious: Yes (Other)
  Sender: FDA-Public Use
  Company Number: PHHY2009JP53276

PATIENT

DRUGS (2)
  1. VOLTAREN [Suspect]
     Route: 048
  2. CELECOXIB [Suspect]
     Route: 048

REACTIONS (1)
  - PULMONARY HYPERTENSION [None]
